FAERS Safety Report 15167172 (Version 1)
Quarter: 2018Q3

REPORT INFORMATION
  Report Type: Spontaneous
  Country: US (occurrence: US)
  Receive Date: 20180719
  Receipt Date: 20180719
  Transmission Date: 20181010
  Serious: Yes (Other)
  Sender: FDA-Public Use
  Company Number: US-JNJFOC-20180719459

PATIENT
  Age: 44 Year
  Sex: Male

DRUGS (1)
  1. INVOKANA [Suspect]
     Active Substance: CANAGLIFLOZIN
     Indication: TYPE 2 DIABETES MELLITUS
     Route: 048
     Dates: start: 20130806

REACTIONS (7)
  - Cellulitis [Unknown]
  - Dizziness [Unknown]
  - Diabetic ulcer [Unknown]
  - Toe amputation [Unknown]
  - Foot deformity [Unknown]
  - Wound [Unknown]
  - Wound sepsis [Unknown]

NARRATIVE: CASE EVENT DATE: 20141107
